FAERS Safety Report 19479238 (Version 2)
Quarter: 2021Q3

REPORT INFORMATION
  Report Type: Report from Study
  Country: BE (occurrence: BE)
  Receive Date: 20210630
  Receipt Date: 20210707
  Transmission Date: 20211014
  Serious: Yes (Hospitalization, Other)
  Sender: FDA-Public Use
  Company Number: BE-BAYER-2021-163243

PATIENT
  Age: 73 Year
  Sex: Female

DRUGS (1)
  1. NEXAVAR [Suspect]
     Active Substance: SORAFENIB
     Indication: HEPATOCELLULAR CARCINOMA
     Dosage: 400 MG DAILY
     Dates: start: 20210618, end: 20210625

REACTIONS (3)
  - Body temperature abnormal [Recovered/Resolved]
  - Urinary tract infection [Recovered/Resolved]
  - Off label use [None]

NARRATIVE: CASE EVENT DATE: 20210618
